FAERS Safety Report 14359575 (Version 1)
Quarter: 2018Q1

REPORT INFORMATION
  Report Type: Spontaneous
  Country: US (occurrence: US)
  Receive Date: 20180105
  Receipt Date: 20180105
  Transmission Date: 20180509
  Serious: No
  Sender: FDA-Public Use
  Company Number: -SAAVPROD-BI2017BI004947

PATIENT
  Age: 76 Year
  Sex: Female

DRUGS (3)
  1. ANDROGENS AND FEMALE SEX HORMONES IN COMB [Concomitant]
     Indication: HORMONE REPLACEMENT THERAPY
     Dosage: 1 TAB BID;  FORMULATION: TABLET;
     Route: 048
     Dates: start: 1993
  2. FOLIC ACID. [Concomitant]
     Active Substance: FOLIC ACID
     Indication: PRODUCT USED FOR UNKNOWN INDICATION
     Dosage: 1 TAB 3 TIMES WEEK;  FORM STRENGTH: 20MG; FORMULATION: TABLET
     Route: 048
  3. RANITIDINE HYDROCHLORIDE. [Suspect]
     Active Substance: RANITIDINE HYDROCHLORIDE
     Indication: GASTROOESOPHAGEAL REFLUX DISEASE
     Dosage: 2 TABS BID;  FORM STRENGTH: 150 MG; FORMULATION: TABLET? ADMINISTRATION CORRECT? NO ?ACTION(S) TAKEN
     Route: 048
     Dates: start: 201606

REACTIONS (6)
  - Rash [Recovered/Resolved]
  - Incorrect dose administered [Unknown]
  - Pruritus [Unknown]
  - Off label use [Unknown]
  - Incorrect drug administration duration [Unknown]
  - Rash [Unknown]

NARRATIVE: CASE EVENT DATE: 201606
